FAERS Safety Report 10257738 (Version 1)
Quarter: 2014Q2

REPORT INFORMATION
  Report Type: Spontaneous
  Country: US (occurrence: None)
  Receive Date: 20140623
  Receipt Date: 20140623
  Transmission Date: 20141212
  Serious: Yes (Other)
  Sender: FDA-Public Use
  Company Number: None

PATIENT
  Age: 25 Year
  Sex: Female
  Weight: 68.04 kg

DRUGS (1)
  1. LAMOTRIGINE [Suspect]
     Indication: BIPOLAR II DISORDER
     Dosage: 400MG, 200 MORNING AND NIGHT, TWICE DAILY, TAKEN BY MOUTH
     Route: 048
     Dates: start: 20120901, end: 20140619

REACTIONS (5)
  - Eye disorder [None]
  - Blepharospasm [None]
  - Diplopia [None]
  - Vision blurred [None]
  - Blepharospasm [None]
